FAERS Safety Report 7210141-1 (Version None)
Quarter: 2011Q1

REPORT INFORMATION
  Report Type: 
  Country: None (occurrence: None)
  Receive Date: 20110105
  Receipt Date: 20101223
  Transmission Date: 20110831
  Serious: Yes (Other)
  Sender: FDA-Public Use
  Company Number: US-ELI_LILLY_AND_COMPANY-US201012006194

PATIENT
  Age: 45 Year
  Sex: Female

DRUGS (4)
  1. MOTRIN [Concomitant]
  2. SIMVASTATIN [Concomitant]
  3. ASPIRIN [Concomitant]
  4. CYMBALTA [Suspect]
     Indication: DEPRESSION
     Dosage: 90 MG, DAILY (1/D)

REACTIONS (2)
  - KNEE ARTHROPLASTY [None]
  - PAIN [None]
